FAERS Safety Report 9135731 (Version 4)
Quarter: 2013Q4

REPORT INFORMATION
  Report Type: Spontaneous
  Country: GB (occurrence: GB)
  Receive Date: 20130304
  Receipt Date: 20131104
  Transmission Date: 20140711
  Serious: Yes (Hospitalization, Disabling, Other)
  Sender: FDA-Public Use
  Company Number: GB-PFIZER INC-2013072995

PATIENT
  Age: 59 Year
  Sex: Female
  Weight: 80 kg

DRUGS (5)
  1. PREGABALIN [Suspect]
     Indication: NEURALGIA
     Dosage: 25MG TWICE A DAY, INCREASED TO 75MG TWICE A DAY AFTER 1 DAY
     Route: 048
     Dates: start: 20110630, end: 20110630
  2. PREGABALIN [Suspect]
     Indication: NEUROPATHY PERIPHERAL
     Dosage: 75MG TWICE A DAY AFTER 1 DAY
     Route: 048
     Dates: start: 20110701, end: 20110703
  3. AMITRIPTYLINE [Concomitant]
  4. NAPROXEN [Concomitant]
  5. OMEPRAZOLE [Concomitant]

REACTIONS (9)
  - Pain in extremity [Recovered/Resolved]
  - Pain in extremity [Recovered/Resolved]
  - Sensory loss [Recovered/Resolved]
  - Mobility decreased [Recovered/Resolved]
  - Mononeuropathy multiplex [Recovered/Resolved]
  - Condition aggravated [Recovered/Resolved]
  - Peroneal nerve palsy [Recovered/Resolved]
  - Nerve compression [Recovered/Resolved]
  - Abasia [Recovered/Resolved]
